FAERS Safety Report 24229368 (Version 2)
Quarter: 2025Q2

REPORT INFORMATION
  Report Type: Spontaneous
  Country: FR (occurrence: FR)
  Receive Date: 20240820
  Receipt Date: 20250620
  Transmission Date: 20250716
  Serious: Yes (Other)
  Sender: IPSEN BIOPHARMACEUTICALS, INC.
  Company Number: FR-IPSEN Group, Research and Development-2024-09952

PATIENT
  Age: 40 Year
  Sex: Female
  Weight: 62 kg

DRUGS (8)
  1. BYLVAY [Suspect]
     Active Substance: ODEVIXIBAT
     Indication: Off label use
     Dosage: 2400 MICROGRAM
     Route: 051
     Dates: start: 20240522
  2. BYLVAY [Suspect]
     Active Substance: ODEVIXIBAT
     Indication: Liver disorder
     Dosage: 2400 MICROGRAM
     Route: 051
     Dates: start: 20240523
  3. BYLVAY [Suspect]
     Active Substance: ODEVIXIBAT
     Indication: Pruritus
  4. BEZAFIBRATE [Concomitant]
     Active Substance: BEZAFIBRATE
  5. RIFAMYCIN SODIUM [Concomitant]
     Active Substance: RIFAMYCIN SODIUM
  6. CALCIUM\VITAMIN D [Concomitant]
     Active Substance: CALCIUM\VITAMIN D
     Dosage: 1 GRAM DAILY
  7. OXAZEPAM [Concomitant]
     Active Substance: OXAZEPAM
  8. ATARAX [Concomitant]
     Active Substance: HYDROXYZINE HYDROCHLORIDE

REACTIONS (5)
  - Disease progression [Unknown]
  - Diarrhoea [Not Recovered/Not Resolved]
  - Hepatic function abnormal [Unknown]
  - Off label use [Unknown]
  - Off label use [Unknown]

NARRATIVE: CASE EVENT DATE: 20240522
